FAERS Safety Report 7815585-2 (Version None)
Quarter: 2011Q4

REPORT INFORMATION
  Report Type: 
  Country: None (occurrence: None)
  Receive Date: 20111014
  Receipt Date: 20111006
  Transmission Date: 20120403
  Serious: Yes (Death, Other)
  Sender: FDA-Public Use
  Company Number: US-NAPPMUNDI-USA-2011-0074469

PATIENT
  Age: 27 Year
  Sex: Male
  Weight: 81 kg

DRUGS (2)
  1. ETHANOL [Suspect]
  2. OXYCONTIN [Suspect]
     Indication: DRUG ABUSE

REACTIONS (7)
  - SUBSTANCE ABUSE [None]
  - MULTIPLE DRUG OVERDOSE ACCIDENTAL [None]
  - CORONARY ARTERY DISEASE [None]
  - MALAISE [None]
  - NAUSEA [None]
  - TOXICITY TO VARIOUS AGENTS [None]
  - CARDIOMYOPATHY [None]
